FAERS Safety Report 7469630-7 (Version None)
Quarter: 2011Q2

REPORT INFORMATION
  Report Type: 
  Country: None (occurrence: None)
  Receive Date: 20110506
  Receipt Date: 20110506
  Transmission Date: 20111010
  Serious: No
  Sender: FDA-Public Use
  Company Number: None

PATIENT
  Sex: Female
  Weight: 57.8 kg

DRUGS (5)
  1. DEXAMETHASONE [Suspect]
     Dosage: 112 MG
     Dates: end: 20110503
  2. CYTARABINE [Suspect]
     Dosage: 24 MG
     Dates: end: 20110426
  3. DOXORUBICIN HYDROCHLORIDE [Suspect]
     Dosage: 80 MG
     Dates: end: 20110502
  4. VINCRISTINE SULFATE [Suspect]
     Dosage: 4 MG
     Dates: end: 20110502
  5. ONCASPAR [Suspect]
     Dosage: 4000 IU
     Dates: end: 20110429

REACTIONS (1)
  - HYPERGLYCAEMIA [None]
